FAERS Safety Report 8989292 (Version 1)
Quarter: 2012Q4

REPORT INFORMATION
  Report Type: 
  Country: US (occurrence: US)
  Receive Date: 20121227
  Receipt Date: 20121227
  Transmission Date: 20130627
  Serious: Yes (Other)
  Sender: FDA-Public Use
  Company Number: US-TEVA-377700USA

PATIENT

DRUGS (1)
  1. NUVIGIL [Suspect]

REACTIONS (1)
  - Rash [Recovered/Resolved]
